FAERS Safety Report 19378697 (Version 2)
Quarter: 2021Q2

REPORT INFORMATION
  Report Type: Spontaneous
  Country: NL (occurrence: NL)
  Receive Date: 20210606
  Receipt Date: 20210617
  Transmission Date: 20210717
  Serious: Yes (Death)
  Sender: FDA-Public Use
  Company Number: NL-TEVA-2021-NL-1918479

PATIENT
  Age: 77 Year
  Sex: Male

DRUGS (4)
  1. MORFINE INJVLST  5MG/ML / BRAND NAME NOT SPECIFIED [Suspect]
     Active Substance: MORPHINE SULFATE
     Dosage: 5 MILLIGRAM DAILY; THERAPY END DATE : ASKU
     Route: 058
     Dates: start: 20210518
  2. ACETYLSALICYLZUUR TABLET  80MG / BRAND NAME NOT SPECIFIED [Concomitant]
     Active Substance: ASPIRIN
     Dosage: 80 MG (MILLIGRAM) , THERAPY START DATE AND END DATE : ASKU
  3. OMEPRAZOL CAPSULE MSR 20MG / BRAND NAME NOT SPECIFIED [Concomitant]
     Active Substance: OMEPRAZOLE
     Dosage: 20 MG (MILLIGRAM) , THERAPY START DATE AND END DATE : ASKU
  4. ALLOPURINOL TABLET 100MG / BRAND NAME NOT SPECIFIED [Concomitant]
     Active Substance: ALLOPURINOL
     Dosage: 100 MG (MILLIGRAM) ,THERAPY START DATE AND END DATE : ASKU

REACTIONS (2)
  - Neck pain [Fatal]
  - Arthralgia [Fatal]

NARRATIVE: CASE EVENT DATE: 20210518
